FAERS Safety Report 8826033 (Version 2)
Quarter: 2012Q4

REPORT INFORMATION
  Report Type: 
  Country: JP (occurrence: JP)
  Receive Date: 20121005
  Receipt Date: 20121126
  Transmission Date: 20130627
  Serious: Yes (Hospitalization)
  Sender: FDA-Public Use
  Company Number: JP-PFIZER INC-2012204955

PATIENT
  Age: 78 Year
  Sex: Female

DRUGS (3)
  1. NORVASC [Suspect]
     Indication: HYPERTENSION
     Dosage: 2.5 mg, 1x/day
     Route: 048
     Dates: start: 201206
  2. CO-DIO [Concomitant]
     Indication: HYPERTENSION
     Dosage: UNK
  3. PERDIPINE [Concomitant]
     Indication: HYPERTENSION
     Dosage: UNK

REACTIONS (4)
  - Eosinophilic pneumonia [Recovered/Resolved]
  - Eosinophil count increased [Recovered/Resolved]
  - Nasopharyngitis [Not Recovered/Not Resolved]
  - Pyrexia [Not Recovered/Not Resolved]
